FAERS Safety Report 22595445 (Version 2)
Quarter: 2023Q2

REPORT INFORMATION
  Report Type: Spontaneous
  Country: FR (occurrence: FR)
  Receive Date: 20230613
  Receipt Date: 20230622
  Transmission Date: 20230721
  Serious: Yes (Hospitalization, Other)
  Sender: FDA-Public Use
  Company Number: None

PATIENT
  Age: 30 Year
  Sex: Female
  Weight: 95 kg

DRUGS (2)
  1. ARIPIPRAZOLE [Interacting]
     Active Substance: ARIPIPRAZOLE
     Indication: Poisoning deliberate
     Dosage: 20 MG
     Route: 048
     Dates: start: 20220927, end: 20220927
  2. TERALITHE [Interacting]
     Active Substance: LITHIUM CARBONATE
     Indication: Poisoning deliberate
     Dosage: 24000 MG (60 TABLETS OF 40 MG PR)
     Route: 048
     Dates: start: 20220927, end: 20220927

REACTIONS (3)
  - Electrocardiogram QT prolonged [Recovered/Resolved]
  - Product use in unapproved indication [Unknown]
  - Drug interaction [Unknown]

NARRATIVE: CASE EVENT DATE: 20220927
